FAERS Safety Report 7895021-0 (Version None)
Quarter: 2011Q4

REPORT INFORMATION
  Report Type: 
  Country: None (occurrence: None)
  Receive Date: 20111106
  Receipt Date: 20110822
  Transmission Date: 20120403
  Serious: No
  Sender: FDA-Public Use
  Company Number: US-AMGEN-USASP2011042961

PATIENT
  Sex: Male

DRUGS (3)
  1. ENBREL [Suspect]
     Indication: PSORIASIS
     Dosage: UNK
     Dates: start: 20100201, end: 20100801
  2. ENBREL [Suspect]
     Indication: RHEUMATOID ARTHRITIS
  3. REMICADE [Concomitant]

REACTIONS (2)
  - PSORIASIS [None]
  - FATIGUE [None]
